FAERS Safety Report 9181078 (Version 1)
Quarter: 2013Q1

REPORT INFORMATION
  Report Type: Spontaneous
  Country: US (occurrence: US)
  Receive Date: 20130322
  Receipt Date: 20130322
  Transmission Date: 20140127
  Serious: Yes (Hospitalization)
  Sender: FDA-Public Use
  Company Number: US-BAYER-2013-033934

PATIENT
  Age: 30 Year
  Sex: Female

DRUGS (4)
  1. YASMIN [Suspect]
     Indication: ACNE
  2. DEPAKOTE [Concomitant]
     Dosage: 250 MG, QID
  3. ZARONTIN [Concomitant]
     Dosage: 250 MG, TID
  4. ACCUTANE [Concomitant]
     Dosage: 20 MG, 3 TIMES PER WEEK

REACTIONS (2)
  - Pulmonary embolism [Recovering/Resolving]
  - Deep vein thrombosis [Recovering/Resolving]
